FAERS Safety Report 24962119 (Version 1)
Quarter: 2025Q1

REPORT INFORMATION
  Report Type: Spontaneous
  Country: JP (occurrence: JP)
  Receive Date: 20250212
  Receipt Date: 20250212
  Transmission Date: 20250408
  Serious: Yes (Other)
  Sender: FERRING
  Company Number: JP-ferring-EVA202500162FERRINGPH

PATIENT

DRUGS (1)
  1. DINOPROSTONE [Suspect]
     Active Substance: DINOPROSTONE
     Indication: Product used for unknown indication
     Route: 065

REACTIONS (2)
  - Intrapartum haemorrhage [Recovered/Resolved]
  - Contraindicated product administered [Recovered/Resolved]
